FAERS Safety Report 15983802 (Version 1)
Quarter: 2019Q1

REPORT INFORMATION
  Report Type: Spontaneous
  Country: US (occurrence: US)
  Receive Date: 20190125
  Receipt Date: 20190125
  Transmission Date: 20190418
  Serious: No
  Sender: FDA-Public Use
  Company Number: None

PATIENT
  Sex: Female

DRUGS (1)
  1. DRYSOL DAB-O-MATIC [Suspect]
     Active Substance: ALUMINUM CHLORIDE
     Route: 061
     Dates: start: 201901

REACTIONS (2)
  - Application site erythema [None]
  - Application site irritation [None]

NARRATIVE: CASE EVENT DATE: 20190125
